FAERS Safety Report 5282314-9 (Version None)
Quarter: 2007Q1

REPORT INFORMATION
  Report Type: 
  Country: None (occurrence: None)
  Receive Date: 20070331
  Receipt Date: 20070320
  Transmission Date: 20070707
  Serious: Yes (Other)
  Sender: FDA-Public Use
  Company Number: US-PFIZER INC-2007024218

PATIENT
  Sex: Female
  Weight: 63.5 kg

DRUGS (5)
  1. CHANTIX [Suspect]
     Indication: EX-SMOKER
     Route: 048
     Dates: start: 20070228, end: 20070315
  2. ZYRTEC [Suspect]
     Indication: SWOLLEN TONGUE
     Route: 048
  3. ZYRTEC [Suspect]
     Indication: THROAT TIGHTNESS
  4. XANAX [Concomitant]
     Indication: PANIC REACTION
     Route: 048
  5. BENICAR [Concomitant]
     Indication: HYPERTENSION
     Route: 048

REACTIONS (3)
  - ANXIETY [None]
  - SWOLLEN TONGUE [None]
  - THROAT TIGHTNESS [None]
